FAERS Safety Report 17842528 (Version 5)
Quarter: 2020Q3

REPORT INFORMATION
  Report Type: Report from Study
  Country: TW (occurrence: TW)
  Receive Date: 20200529
  Receipt Date: 20200925
  Transmission Date: 20201103
  Serious: Yes (Death, Other)
  Sender: FDA-Public Use
  Company Number: TW-EXELIXIS-XL18420030103

PATIENT
  Age: 44 Year
  Sex: Female
  Weight: 50.9 kg

DRUGS (10)
  1. OXYCODONE [Concomitant]
     Active Substance: OXYCODONE
  2. LOPERAMIDE [Concomitant]
     Active Substance: LOPERAMIDE
  3. MORPHINE SULPHATE [Concomitant]
     Active Substance: MORPHINE SULFATE
  4. CELECOXIB. [Concomitant]
     Active Substance: CELECOXIB
  5. OXYBUTYNIN. [Concomitant]
     Active Substance: OXYBUTYNIN CHLORIDE
  6. TRAMADOL. [Concomitant]
     Active Substance: TRAMADOL
  7. XL184 [Suspect]
     Active Substance: CABOZANTINIB
     Indication: HEPATOCELLULAR CARCINOMA
     Dosage: 40 MG, QD
     Route: 048
     Dates: start: 20200424
  8. ATEZOLIZUMAB. [Suspect]
     Active Substance: ATEZOLIZUMAB
     Indication: HEPATOCELLULAR CARCINOMA
     Dosage: 1200 MG, Q3WEEKS
     Route: 042
     Dates: start: 20200424
  9. XYLMOL [Concomitant]
  10. SENNOSIDE [Concomitant]
     Active Substance: SENNOSIDES

REACTIONS (1)
  - Drug-induced liver injury [Fatal]

NARRATIVE: CASE EVENT DATE: 20200522
